FAERS Safety Report 13752057 (Version 1)
Quarter: 2017Q3

REPORT INFORMATION
  Report Type: Spontaneous
  Country: CH (occurrence: CH)
  Receive Date: 20170713
  Receipt Date: 20170713
  Transmission Date: 20171127
  Serious: Yes (Hospitalization)
  Sender: FDA-Public Use
  Company Number: CH-TEVA-786216ROM

PATIENT
  Age: 45 Year
  Sex: Female

DRUGS (6)
  1. METHOTREXATE. [Suspect]
     Active Substance: METHOTREXATE
     Indication: ANAL CANCER
     Dosage: 27.5MG/M2 FOUR INTRA-ARTERIAL INFUSIONS PER DAY FOR TWO DAYS
     Route: 013
  2. MITOMYCIN. [Suspect]
     Active Substance: MITOMYCIN
     Indication: ANAL CANCER
     Dosage: 1.2MG/M2 FOUR INTRA-ARTERIAL INFUSIONS PER DAY FOR TWO DAYS
     Route: 013
  3. FLUOROURACIL. [Suspect]
     Active Substance: FLUOROURACIL
     Indication: ANAL CANCER
     Dosage: 275MG/M2 FOUR INTRA-ARTERIAL INFUSIONS PER DAY FOR TWO DAYS
     Route: 013
  4. BLEOMYCIN [Suspect]
     Active Substance: BLEOMYCIN SULFATE
     Indication: ANAL CANCER
     Dosage: 10MG SINGLE DOSE ON THE FIRST DAY
     Route: 042
  5. ONDANSETRON [Concomitant]
     Active Substance: ONDANSETRON
     Route: 065
  6. CISPLATIN. [Suspect]
     Active Substance: CISPLATIN
     Indication: ANAL CANCER
     Dosage: 8.5MG/M2 FOUR INTRA-ARTERIAL INFUSIONS PER DAY FOR TWO DAYS
     Route: 013

REACTIONS (1)
  - Stress cardiomyopathy [Recovered/Resolved]
